FAERS Safety Report 7733729-8 (Version None)
Quarter: 2011Q3

REPORT INFORMATION
  Report Type: 
  Country: None (occurrence: None)
  Receive Date: 20110907
  Receipt Date: 20110824
  Transmission Date: 20111222
  Serious: Yes (Hospitalization, Other)
  Sender: FDA-Public Use
  Company Number: CA-ELI_LILLY_AND_COMPANY-CA201108007362

PATIENT
  Age: 25 Year
  Sex: Male
  Weight: 119 kg

DRUGS (12)
  1. DIVALPROEX SODIUM [Concomitant]
  2. ALPRAZOLAM [Concomitant]
  3. ZIPRASIDONE HYDROCHLORIDE [Concomitant]
  4. CLOZAPINE [Concomitant]
  5. LITHIUM CARBONATE [Concomitant]
  6. ZYPREXA [Suspect]
     Indication: SCHIZOPHRENIA
     Dosage: 5 MG, EACH EVENING
  7. RISPERDAL [Concomitant]
  8. EMPRACET                           /00020001/ [Concomitant]
  9. SEROQUEL [Concomitant]
  10. ZYPREXA [Suspect]
     Dosage: 40 MG, EACH EVENING
  11. ATIVAN [Concomitant]
  12. PROCYCLIDINE HYDROCHLORIDE 2MG TAB [Concomitant]

REACTIONS (21)
  - RENAL FAILURE ACUTE [None]
  - HAEMATOCRIT DECREASED [None]
  - VISUAL IMPAIRMENT [None]
  - SINUS TACHYCARDIA [None]
  - DIABETES INSIPIDUS [None]
  - PANCREATITIS ACUTE [None]
  - DIABETES MELLITUS [None]
  - CARDIAC HYPERTROPHY [None]
  - ILEUS [None]
  - HYPERTRIGLYCERIDAEMIA [None]
  - OVERDOSE [None]
  - METABOLIC ACIDOSIS [None]
  - RED BLOOD CELL COUNT DECREASED [None]
  - WEIGHT INCREASED [None]
  - DIABETIC KETOACIDOSIS [None]
  - HYPOVOLAEMIC SHOCK [None]
  - PSEUDOCYST [None]
  - HEPATIC STEATOSIS [None]
  - HAEMOGLOBIN DECREASED [None]
  - BLOOD PRESSURE INCREASED [None]
  - ATELECTASIS [None]
